FAERS Safety Report 4703738-1 (Version None)
Quarter: 2005Q2

REPORT INFORMATION
  Report Type: 
  Country: None (occurrence: None)
  Receive Date: 20050630
  Receipt Date: 20050419
  Transmission Date: 20051028
  Serious: No
  Sender: FDA-Public Use
  Company Number: PHBS2005BR05526

PATIENT
  Age: 74 Year
  Sex: Female
  Weight: 87 kg

DRUGS (4)
  1. CODATEN [Suspect]
     Indication: MYALGIA
     Dosage: 1 DF, TID
     Route: 048
  2. ATENOLOL [Concomitant]
     Indication: HYPERTENSION
     Dosage: 100 MG, QD
     Route: 048
  3. HYDROCHLOROTHIAZIDE [Concomitant]
     Indication: HYPERTENSION
     Dosage: 25 MG, QD
     Route: 048
  4. SIMVASTATIN [Concomitant]
     Indication: BLOOD CHOLESTEROL
     Dosage: 20 MG, QD

REACTIONS (1)
  - BLOOD PRESSURE INCREASED [None]
